FAERS Safety Report 12728434 (Version 1)
Quarter: 2016Q3

REPORT INFORMATION
  Report Type: Spontaneous
  Country: US (occurrence: US)
  Receive Date: 20160907
  Receipt Date: 20160907
  Transmission Date: 20161109
  Serious: Yes (Life-Threatening, Hospitalization, Disabling)
  Sender: FDA-Public Use
  Company Number: None

PATIENT
  Age: 51 Year
  Sex: Male
  Weight: 114 kg

DRUGS (2)
  1. ALTEPLASE [Suspect]
     Active Substance: ALTEPLASE
     Indication: THROMBOLYSIS
     Dosage: OTHER
     Route: 041
     Dates: start: 20160517, end: 20160517
  2. ALTEPLASE [Suspect]
     Active Substance: ALTEPLASE
     Indication: CEREBROVASCULAR ACCIDENT
     Dosage: OTHER
     Route: 041
     Dates: start: 20160517, end: 20160517

REACTIONS (5)
  - Oxygen saturation decreased [None]
  - Mental status changes [None]
  - Dyspnoea [None]
  - Contraindicated product administered [None]
  - Laryngeal oedema [None]

NARRATIVE: CASE EVENT DATE: 20160517
